FAERS Safety Report 15997697 (Version 3)
Quarter: 2019Q2

REPORT INFORMATION
  Report Type: Spontaneous
  Country: FR (occurrence: FR)
  Receive Date: 20190222
  Receipt Date: 20190514
  Transmission Date: 20190711
  Serious: Yes (Other)
  Sender: FDA-Public Use
  Company Number: FR-ETHYPHARM-201900275

PATIENT
  Age: 40 Year
  Sex: Male

DRUGS (2)
  1. OROBUPRE LYOPHILISAT ORAL (BUPRENORPHINE HYDROCHLORIDE) [Suspect]
     Active Substance: BUPRENORPHINE HYDROCHLORIDE
     Indication: PRODUCT SUBSTITUTION
     Route: 002
     Dates: start: 201901
  2. OROBUPRE LYOPHILISAT ORAL (BUPRENORPHINE HYDROCHLORIDE) [Suspect]
     Active Substance: BUPRENORPHINE HYDROCHLORIDE
     Indication: PRODUCT SUBSTITUTION
     Route: 002

REACTIONS (2)
  - Overdose [Unknown]
  - Sudden onset of sleep [Recovered/Resolved]

NARRATIVE: CASE EVENT DATE: 201901
